FAERS Safety Report 8054328-7 (Version None)
Quarter: 2012Q1

REPORT INFORMATION
  Report Type: 
  Country: None (occurrence: None)
  Receive Date: 20120118
  Receipt Date: 20120112
  Transmission Date: 20120608
  Serious: Yes (Other)
  Sender: FDA-Public Use
  Company Number: PHHY2011CA103207

PATIENT
  Sex: Male

DRUGS (3)
  1. ZOLEDRONOC ACID [Suspect]
     Indication: OSTEOPOROSIS
     Dosage: 5 MG/100ML (ONCE A YEAR), UNK
     Route: 042
     Dates: start: 20091109
  2. ZOLEDRONOC ACID [Suspect]
     Dosage: 5 MG/100ML (ONCE A YEAR), UNK
     Route: 042
     Dates: start: 20101123
  3. ZOLEDRONOC ACID [Suspect]
     Dosage: 5 MG/100ML (ONCE A YEAR), UNK
     Route: 042
     Dates: start: 20111122

REACTIONS (1)
  - PANCREATITIS [None]
